FAERS Safety Report 4797335-X (Version None)
Quarter: 2005Q4

REPORT INFORMATION
  Report Type: 
  Country: None (occurrence: None)
  Receive Date: 20051013
  Receipt Date: 20050818
  Transmission Date: 20060501
  Serious: Yes (Hospitalization)
  Sender: FDA-Public Use
  Company Number: 2005SE04707

PATIENT
  Age: 14932 Day
  Sex: Female

DRUGS (5)
  1. BLOPRESS [Suspect]
     Indication: HYPERTENSION
     Route: 048
  2. FUROSEMIDE [Suspect]
     Indication: DIURETIC THERAPY
     Route: 065
  3. NEORAL [Concomitant]
     Route: 048
     Dates: start: 20050611
  4. MYFORTIC [Concomitant]
     Route: 048
     Dates: start: 20050611
  5. URBASON [Concomitant]
     Route: 048

REACTIONS (5)
  - DEHYDRATION [None]
  - OVERDOSE [None]
  - RENAL FAILURE ACUTE [None]
  - SELF-MEDICATION [None]
  - TRANSPLANT FAILURE [None]
